FAERS Safety Report 8339185-3 (Version None)
Quarter: 2012Q2

REPORT INFORMATION
  Report Type: 
  Country: None (occurrence: None)
  Receive Date: 20120507
  Receipt Date: 20120501
  Transmission Date: 20120825
  Serious: No
  Sender: FDA-Public Use
  Company Number: US-PFIZER INC-2012107921

PATIENT
  Sex: Male

DRUGS (1)
  1. SUTENT [Suspect]
     Indication: CONNECTIVE TISSUE NEOPLASM
     Dosage: 37.5 MG, (12.5 MG X 3 PO DAILY)
     Route: 048
     Dates: start: 20110215

REACTIONS (2)
  - DISEASE PROGRESSION [None]
  - CONNECTIVE TISSUE NEOPLASM [None]
